FAERS Safety Report 5252478-1 (Version None)
Quarter: 2007Q1

REPORT INFORMATION
  Report Type: 
  Country: None (occurrence: None)
  Receive Date: 20070301
  Receipt Date: 20061204
  Transmission Date: 20070707
  Serious: No
  Sender: FDA-Public Use
  Company Number: US-BRISTOL-MYERS SQUIBB COMPANY-13600358

PATIENT
  Sex: Male

DRUGS (4)
  1. ERBITUX [Suspect]
     Indication: NEOPLASM MALIGNANT
     Route: 042
     Dates: start: 20061204, end: 20061204
  2. RADIATION THERAPY [Concomitant]
  3. TYLENOL [Concomitant]
     Indication: PREMEDICATION
     Route: 048
  4. BENADRYL [Concomitant]
     Indication: PREMEDICATION
     Route: 042

REACTIONS (1)
  - INFUSION SITE REACTION [None]
